FAERS Safety Report 21938182 (Version 1)
Quarter: 2023Q1

REPORT INFORMATION
  Report Type: Report from Study
  Country: US (occurrence: US)
  Receive Date: 20230201
  Receipt Date: 20230201
  Transmission Date: 20230418
  Serious: No
  Sender: FDA-Public Use
  Company Number: US-INCYTE CORPORATION-2022IN000364

PATIENT

DRUGS (46)
  1. PEMIGATINIB [Suspect]
     Active Substance: PEMIGATINIB
     Indication: Cholangiocarcinoma
     Dosage: 13.5 MILLIGRAM, QD
     Route: 048
  2. PEMIGATINIB [Suspect]
     Active Substance: PEMIGATINIB
     Dosage: 13.5 MILLIGRAM, QD (13.5MG DAILY 14DAYS ON 7 DAYS OFF)
     Route: 048
     Dates: start: 20220121
  3. FEXOFENADINE [Suspect]
     Active Substance: FEXOFENADINE HYDROCHLORIDE
     Indication: Product used for unknown indication
     Route: 065
  4. TYLENOL [Concomitant]
     Active Substance: ACETAMINOPHEN
     Indication: Product used for unknown indication
     Route: 065
  5. TYLENOL [Concomitant]
     Active Substance: ACETAMINOPHEN
     Dosage: 500 MILLIGRAM, PRN
     Route: 065
  6. ALBUTEROL SULFATE [Concomitant]
     Active Substance: ALBUTEROL SULFATE
     Indication: Product used for unknown indication
     Dosage: UNK
     Route: 065
  7. ALBUTEROL SULFATE [Concomitant]
     Active Substance: ALBUTEROL SULFATE
     Dosage: PRN
     Route: 065
  8. ALPRAZOLAM [Concomitant]
     Active Substance: ALPRAZOLAM
     Indication: Product used for unknown indication
     Dosage: UNK
     Route: 065
  9. ALPRAZOLAM [Concomitant]
     Active Substance: ALPRAZOLAM
     Dosage: 0.5 MILLIGRAM, PRN
     Route: 065
  10. ASPIRIN [Concomitant]
     Active Substance: ASPIRIN
     Indication: Product used for unknown indication
     Route: 065
  11. ASPIRIN [Concomitant]
     Active Substance: ASPIRIN
     Dosage: 81 MILLIGRAM DAILY
     Route: 065
  12. CELEBREX [Concomitant]
     Active Substance: CELECOXIB
     Indication: Product used for unknown indication
     Dosage: UNK
     Route: 065
  13. CELEBREX [Concomitant]
     Active Substance: CELECOXIB
     Dosage: 200 MILLIGRAM DAILY
     Route: 065
  14. VITAMIN D NOS [Concomitant]
     Active Substance: VITAMIN D NOS
     Indication: Product used for unknown indication
     Dosage: UNK
     Route: 065
  15. VITAMIN D NOS [Concomitant]
     Active Substance: VITAMIN D NOS
     Dosage: 50 MICROGRAM DAILY
     Route: 065
  16. CRANBERRY [Concomitant]
     Active Substance: CRANBERRY
     Indication: Product used for unknown indication
     Dosage: DAILY
     Route: 065
  17. CYANOCOBALAMIN [Concomitant]
     Active Substance: CYANOCOBALAMIN
     Indication: Product used for unknown indication
     Route: 065
  18. CYANOCOBALAMIN [Concomitant]
     Active Substance: CYANOCOBALAMIN
     Dosage: 2000 MICROGRAM DAILY
     Route: 065
  19. FELODIPINE [Concomitant]
     Active Substance: FELODIPINE
     Indication: Product used for unknown indication
     Dosage: UNK
     Route: 065
  20. FELODIPINE [Concomitant]
     Active Substance: FELODIPINE
     Dosage: 5 MILLIGRAM DAILY
     Route: 065
  21. GABAPENTIN [Concomitant]
     Active Substance: GABAPENTIN
     Indication: Product used for unknown indication
     Route: 065
  22. GABAPENTIN [Concomitant]
     Active Substance: GABAPENTIN
     Dosage: 300 MILLIGRAM, TID
     Route: 065
  23. GLIPIZIDE [Concomitant]
     Active Substance: GLIPIZIDE
     Indication: Product used for unknown indication
     Dosage: UNK
     Route: 065
  24. GLIPIZIDE [Concomitant]
     Active Substance: GLIPIZIDE
     Dosage: 2.5 MILLIGRAM DAILY
     Route: 065
  25. HYDROCHLOROTHIAZIDE [Concomitant]
     Active Substance: HYDROCHLOROTHIAZIDE
     Indication: Product used for unknown indication
     Route: 065
  26. HYDROCHLOROTHIAZIDE [Concomitant]
     Active Substance: HYDROCHLOROTHIAZIDE
     Dosage: 25 MILLIGRAM DAILY
     Route: 065
  27. LATANOPROST [Concomitant]
     Active Substance: LATANOPROST
     Indication: Product used for unknown indication
     Dosage: UNK
     Route: 065
  28. LATANOPROST [Concomitant]
     Active Substance: LATANOPROST
     Dosage: 0.005 PERCENT, QHS EACH EYE
     Route: 065
  29. MAGNESIUM OXIDE [Concomitant]
     Active Substance: MAGNESIUM OXIDE
     Indication: Product used for unknown indication
     Route: 065
  30. MAGNESIUM OXIDE [Concomitant]
     Active Substance: MAGNESIUM OXIDE
     Dosage: 400 MILLIGRAM, BID
     Route: 065
  31. METOPROLOL TARTRATE [Concomitant]
     Active Substance: METOPROLOL TARTRATE
     Indication: Product used for unknown indication
     Dosage: UNK
     Route: 065
  32. METOPROLOL TARTRATE [Concomitant]
     Active Substance: METOPROLOL TARTRATE
     Dosage: 50 MILLIGRAM, BID
     Route: 065
  33. VITAMINS NOS [Concomitant]
     Active Substance: VITAMINS
     Indication: Product used for unknown indication
     Dosage: DAILY
     Route: 065
  34. OMEPRAZOLE [Concomitant]
     Active Substance: OMEPRAZOLE
     Indication: Product used for unknown indication
     Route: 065
  35. OMEPRAZOLE [Concomitant]
     Active Substance: OMEPRAZOLE
     Dosage: 40 MILLIGRAM DAILY
     Route: 065
  36. POTASSIUM CHLORIDE [Concomitant]
     Active Substance: POTASSIUM CHLORIDE
     Indication: Product used for unknown indication
     Dosage: UNK
     Route: 065
  37. POTASSIUM CHLORIDE [Concomitant]
     Active Substance: POTASSIUM CHLORIDE
     Dosage: 20 MILLIEQUIVALENT, BID
     Route: 065
  38. PREDNISOLONE [Concomitant]
     Active Substance: PREDNISOLONE
     Indication: Product used for unknown indication
     Dosage: UNK
     Route: 065
  39. PREDNISOLONE [Concomitant]
     Active Substance: PREDNISOLONE
     Dosage: BID EACH EYE
     Route: 065
  40. LOSARTAN POTASSIUM [Concomitant]
     Active Substance: LOSARTAN POTASSIUM
     Indication: Product used for unknown indication
     Dosage: 100 MILLIGRAM DAILY
     Route: 065
  41. COMPAZINE [Concomitant]
     Active Substance: PROCHLORPERAZINE MALEATE
     Indication: Product used for unknown indication
     Dosage: 10 MILLIGRAM, PRN
     Route: 065
  42. SEVELAMER [Concomitant]
     Active Substance: SEVELAMER
     Indication: Product used for unknown indication
     Dosage: 0.8 GRAM, TID WITH MEALS
     Route: 065
  43. TEMAZEPAM [Concomitant]
     Active Substance: TEMAZEPAM
     Indication: Product used for unknown indication
     Dosage: 30 MILLIGRAM, QHS
     Route: 065
  44. VENLAFAXINE [Concomitant]
     Active Substance: VENLAFAXINE HYDROCHLORIDE
     Indication: Product used for unknown indication
     Dosage: 75 MILLIGRAM DAILY
     Route: 065
  45. MINERALS\VITAMINS [Concomitant]
     Active Substance: MINERALS\VITAMINS
     Indication: Product used for unknown indication
     Dosage: DAILY
     Route: 065
  46. REFRESH PM [PARAFFIN, LIQUID;WHITE SOFT PARAFFIN] [Concomitant]
     Indication: Product used for unknown indication
     Route: 065

REACTIONS (19)
  - Product dose omission issue [Unknown]
  - Corneal abrasion [Unknown]
  - Glomerular filtration rate decreased [Recovered/Resolved]
  - Tongue erythema [Unknown]
  - Arthritis [Not Recovered/Not Resolved]
  - Hypertension [Recovered/Resolved]
  - Fungal infection [Unknown]
  - Insomnia [Unknown]
  - Erythema [Unknown]
  - Back pain [Not Recovered/Not Resolved]
  - Weight decreased [Unknown]
  - Nail disorder [Not Recovered/Not Resolved]
  - Alopecia [Unknown]
  - Stomatitis [Unknown]
  - Fatigue [Unknown]
  - Dry eye [Unknown]
  - Constipation [Unknown]
  - Dry skin [Unknown]
  - Blood phosphorus increased [Unknown]

NARRATIVE: CASE EVENT DATE: 20220204
